FAERS Safety Report 13252534 (Version 2)
Quarter: 2017Q1

REPORT INFORMATION
  Report Type: Spontaneous
  Country: US (occurrence: US)
  Receive Date: 20170220
  Receipt Date: 20170223
  Transmission Date: 20170428
  Serious: No
  Sender: FDA-Public Use
  Company Number: US-TEVA-733425USA

PATIENT
  Sex: Female
  Weight: 72.64 kg

DRUGS (2)
  1. SINGULAIR [Concomitant]
     Active Substance: MONTELUKAST SODIUM
     Indication: HYPERSENSITIVITY
  2. QVAR [Suspect]
     Active Substance: BECLOMETHASONE DIPROPIONATE
     Indication: BRONCHIAL HYPERREACTIVITY

REACTIONS (5)
  - Chest pain [Unknown]
  - Medication residue present [Unknown]
  - Product cleaning inadequate [Unknown]
  - Pneumonitis [Unknown]
  - Drug ineffective [Unknown]
